FAERS Safety Report 5372469-X (Version None)
Quarter: 2007Q2

REPORT INFORMATION
  Report Type: 
  Country: None (occurrence: None)
  Receive Date: 20070620
  Receipt Date: 20070423
  Transmission Date: 20071010
  Serious: No
  Sender: FDA-Public Use
  Company Number: 2007RL000183

PATIENT
  Age: 66 Year
  Sex: Male
  Weight: 87.9978 kg

DRUGS (9)
  1. OMACOR [Suspect]
     Indication: BLOOD TRIGLYCERIDES INCREASED
     Dosage: 1 GM;QD;PO; 2GM;QD;PO;3 GM;QD;PO; 4 GM;QD;PO
     Route: 048
     Dates: start: 20070101, end: 20070422
  2. OMACOR [Suspect]
     Indication: BLOOD TRIGLYCERIDES INCREASED
     Dosage: 1 GM;QD;PO; 2GM;QD;PO;3 GM;QD;PO; 4 GM;QD;PO
     Route: 048
     Dates: start: 20060101
  3. OMACOR [Suspect]
     Indication: BLOOD TRIGLYCERIDES INCREASED
     Dosage: 1 GM;QD;PO; 2GM;QD;PO;3 GM;QD;PO; 4 GM;QD;PO
     Route: 048
     Dates: start: 20060101
  4. OMACOR [Suspect]
     Indication: BLOOD TRIGLYCERIDES INCREASED
     Dosage: 1 GM;QD;PO; 2GM;QD;PO;3 GM;QD;PO; 4 GM;QD;PO
     Route: 048
     Dates: start: 20070101
  5. PRILOSEC OTC [Concomitant]
  6. TUMS [Concomitant]
  7. LIPITOR [Concomitant]
  8. ASPIRIN [Concomitant]
  9. ^LIVER EX^ [Concomitant]

REACTIONS (3)
  - CHEST DISCOMFORT [None]
  - FATIGUE [None]
  - GASTROOESOPHAGEAL REFLUX DISEASE [None]
